FAERS Safety Report 5823792-3 (Version None)
Quarter: 2008Q3

REPORT INFORMATION
  Report Type: 
  Country: None (occurrence: None)
  Receive Date: 20080725
  Receipt Date: 20080716
  Transmission Date: 20090109
  Serious: Yes (Death)
  Sender: FDA-Public Use
  Company Number: GB-ABBOTT-08P-167-0458692-00

PATIENT
  Age: 34 Year
  Sex: Female

DRUGS (7)
  1. LEVOTHYROXINE SODIUM [Suspect]
     Indication: HYPOTHYROIDISM
     Dosage: OVERDOSE AMOUNT UNKNOWN
     Dates: start: 20060414
  2. LANSOPRAZOLE [Suspect]
     Indication: DRUG USE FOR UNKNOWN INDICATION
     Dosage: OVERDOSE AMOUNT UNKNOWN
     Dates: start: 20060414
  3. CITALOPRAM HYDROBROMIDE [Suspect]
     Indication: DRUG USE FOR UNKNOWN INDICATION
     Dosage: OVERDOSE AMOUNT UNKNOWN
     Dates: start: 20060414
  4. COMBIVENT [Suspect]
     Indication: DRUG USE FOR UNKNOWN INDICATION
     Dosage: OVERDOSE AMOUNT UNKNOWN
     Dates: start: 20060414
  5. THEOPHYLLINE [Suspect]
     Indication: DRUG USE FOR UNKNOWN INDICATION
     Dosage: OVERDOSE AMOUNT UNKNOWN
     Dates: start: 20060414
  6. CLOZAPINE [Suspect]
     Indication: DRUG USE FOR UNKNOWN INDICATION
     Dosage: OVERDOSE AMOUNT UNKNOWN
     Dates: start: 20051013, end: 20060413
  7. CLOZAPINE [Suspect]
     Dates: start: 20060414

REACTIONS (4)
  - DEPRESSED LEVEL OF CONSCIOUSNESS [None]
  - DRUG TOXICITY [None]
  - OVERDOSE [None]
  - RESPIRATORY DEPRESSION [None]
